FAERS Safety Report 7679643-8 (Version None)
Quarter: 2011Q3

REPORT INFORMATION
  Report Type: 
  Country: None (occurrence: None)
  Receive Date: 20110808
  Receipt Date: 20110627
  Transmission Date: 20111222
  Serious: Yes (Hospitalization, Other)
  Sender: FDA-Public Use
  Company Number: 2011SP029781

PATIENT
  Age: 47 Year
  Sex: Male
  Weight: 79 kg

DRUGS (3)
  1. LORAZEPAM [Suspect]
     Indication: PRODUCT USED FOR UNKNOWN INDICATION
     Dosage: QD; PO
     Route: 048
     Dates: start: 20110214, end: 20110225
  2. MIRTAZAPINE [Suspect]
     Indication: PRODUCT USED FOR UNKNOWN INDICATION
     Dosage: 7.5 MG; QD; PO
     Route: 048
     Dates: start: 20110214, end: 20110223
  3. SEROQUEL [Suspect]
     Indication: PRODUCT USED FOR UNKNOWN INDICATION
     Dosage: QD; PO
     Route: 048
     Dates: start: 20110101, end: 20110302

REACTIONS (4)
  - ALANINE AMINOTRANSFERASE INCREASED [None]
  - SUICIDAL BEHAVIOUR [None]
  - CHOLESTASIS [None]
  - ASPARTATE AMINOTRANSFERASE INCREASED [None]
